FAERS Safety Report 4321988-3 (Version None)
Quarter: 2004Q1

REPORT INFORMATION
  Report Type: 
  Country: None (occurrence: None)
  Receive Date: 20040319
  Receipt Date: 20040309
  Transmission Date: 20041129
  Serious: Yes (Death)
  Sender: FDA-Public Use
  Company Number: KII-2002-0003324

PATIENT
  Sex: Male

DRUGS (1)
  1. MORPHINE SULFATE (SIMILIAR TO NDA 19-516)(MORPHINE SULFATE) UNKNOWN [Suspect]
     Indication: CANCER PAIN

REACTIONS (1)
  - DEATH [None]
